FAERS Safety Report 23592941 (Version 4)
Quarter: 2024Q3

REPORT INFORMATION
  Report Type: Spontaneous
  Country: US (occurrence: US)
  Receive Date: 20240304
  Receipt Date: 20240709
  Transmission Date: 20241016
  Serious: Yes (Life-Threatening, Hospitalization, Disabling, Other)
  Sender: PFIZER
  Company Number: US-PFIZER INC-202400054932

PATIENT
  Age: 76 Year
  Sex: Female
  Weight: 76.644 kg

DRUGS (6)
  1. PAXLOVID [Suspect]
     Active Substance: NIRMATRELVIR\RITONAVIR
     Indication: COVID-19 treatment
     Dosage: [PF-07321332 300 MG]/[RITONAVIR 100 MG]; 2X/DAY
     Dates: start: 20230807, end: 20230811
  2. CELEBREX [Concomitant]
     Active Substance: CELECOXIB
     Dosage: TOOK 11 A DAILY
  3. LOSARTAN [Concomitant]
     Active Substance: LOSARTAN
     Dosage: TOOK 11 A DAILY
  4. MG [MAGNESIUM SULFATE] [Concomitant]
     Dosage: TOOK 11 AM + 11 PM
  5. HYDROCHLOROTHIAZIDE [Concomitant]
     Active Substance: HYDROCHLOROTHIAZIDE
     Dosage: TOOK 11 AM DAILY
  6. NEXIUM I.V. [Concomitant]
     Active Substance: ESOMEPRAZOLE SODIUM
     Dosage: TOOK 11 AM

REACTIONS (11)
  - Presyncope [Recovered/Resolved]
  - Dizziness [Recovering/Resolving]
  - Hypoacusis [Not Recovered/Not Resolved]
  - Fall [Unknown]
  - Balance disorder [Unknown]
  - Deafness [Unknown]
  - Dysgeusia [Unknown]
  - Upper respiratory tract infection [Recovering/Resolving]
  - Asthenia [Not Recovered/Not Resolved]
  - Hypotension [Not Recovered/Not Resolved]
  - Post-acute COVID-19 syndrome [Unknown]

NARRATIVE: CASE EVENT DATE: 20230801
